FAERS Safety Report 5420012-9 (Version None)
Quarter: 2007Q3

REPORT INFORMATION
  Report Type: 
  Country: None (occurrence: None)
  Receive Date: 20070820
  Receipt Date: 20070811
  Transmission Date: 20080115
  Serious: Yes (Other)
  Sender: FDA-Public Use
  Company Number: US-PFIZER INC-2007060417

PATIENT
  Sex: Male
  Weight: 79.4 kg

DRUGS (6)
  1. LIPITOR [Suspect]
     Indication: CEREBROVASCULAR ACCIDENT
     Route: 048
     Dates: start: 20070428, end: 20070622
  2. LIPITOR [Suspect]
     Indication: BLOOD CHOLESTEROL
  3. LISINOPRIL [Concomitant]
  4. DULCOLAX [Concomitant]
  5. AGGRENOX [Concomitant]
  6. AMBIEN [Concomitant]

REACTIONS (10)
  - CEREBRAL HAEMORRHAGE [None]
  - DEPRESSION [None]
  - DISTURBANCE IN ATTENTION [None]
  - EXPRESSIVE LANGUAGE DISORDER [None]
  - FEELING ABNORMAL [None]
  - HEMIPARESIS [None]
  - MENTAL IMPAIRMENT [None]
  - NEUROPATHY [None]
  - PERONEAL NERVE INJURY [None]
  - PERONEAL NERVE PALSY [None]
